FAERS Safety Report 5070310-6 (Version None)
Quarter: 2006Q3

REPORT INFORMATION
  Report Type: 
  Country: None (occurrence: None)
  Receive Date: 20060802
  Receipt Date: 20060310
  Transmission Date: 20061208
  Serious: Yes (Hospitalization)
  Sender: FDA-Public Use
  Company Number: OMPQ-NO-060IL-0031

PATIENT
  Age: 61 Year
  Sex: Female

DRUGS (9)
  1. OMNIPAQUE 140 [Suspect]
     Indication: HERPES ZOSTER
     Dosage: 2 ML (SINGLE DOSE) EPIDURAL
     Route: 008
     Dates: start: 20050509, end: 20050509
  2. MEPIVACAINE HYDROCHLORIDE (CARBOCAIN) [Concomitant]
  3. DEXAMETHASONE (DECADRON PHOSPHATE) [Concomitant]
  4. ROPIVACAINE HYDROCHLORIDE (ANAPEINE) [Concomitant]
  5. MECOBALAMIN (METHYCOBAL) [Concomitant]
  6. AMITRIPTYLINE HYDROCHLORIDE (TRYPTANOL) [Concomitant]
  7. ALPROSTADIL (PALUX) [Concomitant]
  8. LIDOCAINE HYDROCHLORIDE (XYLOCAINE) [Concomitant]
  9. DECADRON [Concomitant]

REACTIONS (4)
  - ACUTE GENERALISED EXANTHEMATOUS PUSTULOSIS [None]
  - DEHYDRATION [None]
  - HEPATIC FUNCTION ABNORMAL [None]
  - SKIN TEST POSITIVE [None]
